FAERS Safety Report 7582709-4 (Version None)
Quarter: 2011Q2

REPORT INFORMATION
  Report Type: 
  Country: None (occurrence: None)
  Receive Date: 20110630
  Receipt Date: 20110628
  Transmission Date: 20111010
  Serious: Yes (Other)
  Sender: FDA-Public Use
  Company Number: US-PFIZER INC-2011144393

PATIENT

DRUGS (1)
  1. LYRICA [Suspect]
     Dosage: 50 MG, UNK
     Route: 048

REACTIONS (3)
  - DIZZINESS [None]
  - ATAXIA [None]
  - GAIT DISTURBANCE [None]
